FAERS Safety Report 5507376-2 (Version None)
Quarter: 2007Q4

REPORT INFORMATION
  Report Type: 
  Country: None (occurrence: None)
  Receive Date: 20071102
  Receipt Date: 20071025
  Transmission Date: 20080405
  Serious: Yes (Hospitalization, Disabling, Other)
  Sender: FDA-Public Use
  Company Number: 2007SP017797

PATIENT
  Age: 58 Year
  Sex: Male
  Weight: 97.6 kg

DRUGS (9)
  1. TEMODAL [Suspect]
     Indication: GLIOBLASTOMA
     Dosage: 170 MG;QD;PO
     Route: 048
     Dates: start: 20070822, end: 20070907
  2. AUGMENTIN '500' [Concomitant]
  3. DEXAMETHASONE [Concomitant]
  4. PHENYTOIN [Concomitant]
  5. CODEINE SUL TAB [Concomitant]
  6. PARACETAMOL [Concomitant]
  7. METOCLOPRAMIDE [Concomitant]
  8. MORPHINE [Concomitant]
  9. OROMORPH [Concomitant]

REACTIONS (7)
  - FALL [None]
  - LUNG CONSOLIDATION [None]
  - MUSCULOSKELETAL PAIN [None]
  - NEOPLASM PROGRESSION [None]
  - PLATELET COUNT DECREASED [None]
  - PLEURAL EFFUSION [None]
  - PULMONARY EMBOLISM [None]
